FAERS Safety Report 5183690-8 (Version None)
Quarter: 2006Q4

REPORT INFORMATION
  Report Type: 
  Country: None (occurrence: None)
  Receive Date: 20061220
  Receipt Date: 20060130
  Transmission Date: 20070319
  Serious: No
  Sender: FDA-Public Use
  Company Number: US-GLAXOSMITHKLINE-A0591424A

PATIENT
  Age: 34 Year
  Sex: Male

DRUGS (2)
  1. NICODERM CQ [Suspect]
  2. COMMIT [Suspect]

REACTIONS (3)
  - ANXIETY [None]
  - PANIC ATTACK [None]
  - THROAT IRRITATION [None]
